FAERS Safety Report 25869713 (Version 1)
Quarter: 2025Q3

REPORT INFORMATION
  Report Type: Spontaneous
  Country: US (occurrence: None)
  Receive Date: 20250930
  Receipt Date: 20250930
  Transmission Date: 20251020
  Serious: Yes (Hospitalization)
  Sender: FDA-CTU
  Company Number: None

PATIENT
  Age: 64 Year
  Sex: Female
  Weight: 40.9 kg

DRUGS (9)
  1. TEBENTAFUSP [Suspect]
     Active Substance: TEBENTAFUSP
     Indication: Metastatic malignant melanoma
     Route: 041
     Dates: start: 20250825, end: 20250825
  2. amlodipine 2.5 mg daily [Concomitant]
  3. ASPIRIN [Concomitant]
     Active Substance: ASPIRIN
  4. buspirone 5 mg TID PRN anxiety [Concomitant]
  5. mirtazapine 15 mg HS [Concomitant]
  6. ondansetron 8 mg q8hours PRN N/V [Concomitant]
  7. pravastatin 80 mg daily [Concomitant]
  8. promethazine 25 mg q6hours PRN N/V [Concomitant]
  9. nitroglycerin 0.4 mg SL PRN chest pain [Concomitant]

REACTIONS (7)
  - Electrolyte imbalance [None]
  - Asthenia [None]
  - Lethargy [None]
  - Tachycardia [None]
  - Hypotension [None]
  - Vomiting [None]
  - Body temperature increased [None]

NARRATIVE: CASE EVENT DATE: 20250831
